FAERS Safety Report 6721497-8 (Version None)
Quarter: 2010Q2

REPORT INFORMATION
  Report Type: 
  Country: None (occurrence: None)
  Receive Date: 20100512
  Receipt Date: 20100503
  Transmission Date: 20101027
  Serious: Yes (Other)
  Sender: FDA-Public Use
  Company Number: US-ALLERGAN-1005790US

PATIENT
  Age: 57 Year
  Sex: Female

DRUGS (3)
  1. BOTOX COSMETIC [Suspect]
     Indication: SKIN WRINKLING
     Dosage: 48 UNITS, SINGLE
     Dates: start: 20091103, end: 20091103
  2. BOTOX COSMETIC [Suspect]
     Indication: MIGRAINE
     Dosage: 52 UNITS, SINGLE
     Dates: start: 20100201, end: 20100201
  3. COUMADIN [Concomitant]
     Indication: PLASMINOGEN ACTIVATOR INHIBITOR

REACTIONS (9)
  - APPENDIX DISORDER [None]
  - ATELECTASIS [None]
  - BLEPHAROSPASM [None]
  - DYSPHONIA [None]
  - DYSPNOEA [None]
  - MALAISE [None]
  - PAIN [None]
  - PLEURAL EFFUSION [None]
  - THERAPEUTIC RESPONSE DECREASED [None]
